FAERS Safety Report 24157513 (Version 1)
Quarter: 2024Q3

REPORT INFORMATION
  Report Type: Spontaneous
  Country: US (occurrence: None)
  Receive Date: 20240731
  Receipt Date: 20240731
  Transmission Date: 20241017
  Serious: Yes (Other)
  Sender: Public
  Company Number: None

PATIENT
  Age: 86 Year
  Sex: Female

DRUGS (1)
  1. SYFOVRE [Suspect]
     Active Substance: PEGCETACOPLAN
     Indication: Macular degeneration
     Dosage: OTHER FREQUENCY : EVERY 8 WEEKS;?
     Route: 031
     Dates: start: 20240401, end: 20240729

REACTIONS (4)
  - Vision blurred [None]
  - Photophobia [None]
  - Vitritis [None]
  - Vitreous floaters [None]

NARRATIVE: CASE EVENT DATE: 20240729
